FAERS Safety Report 10622959 (Version 1)
Quarter: 2014Q4

REPORT INFORMATION
  Report Type: Spontaneous
  Country: AR (occurrence: AR)
  Receive Date: 20141203
  Receipt Date: 20141203
  Transmission Date: 20150529
  Serious: Yes (Death, Congenital Anomaly, Other)
  Sender: FDA-Public Use
  Company Number: PHHY2014AR155543

PATIENT
  Weight: 2.37 kg

DRUGS (5)
  1. MYCOPHENOLATE MOFETIL. [Suspect]
     Active Substance: MYCOPHENOLATE MOFETIL
     Route: 064
  2. AZATHIOPRINE. [Suspect]
     Active Substance: AZATHIOPRINE
     Route: 064
  3. HYDROXYCHLOROQUINE [Suspect]
     Active Substance: HYDROXYCHLOROQUINE
     Route: 064
  4. CALCIUM [Suspect]
     Active Substance: CALCIUM
     Route: 064
  5. PREDNISOLONE. [Suspect]
     Active Substance: PREDNISOLONE
     Route: 064

REACTIONS (13)
  - Spine malformation [Unknown]
  - Death [Fatal]
  - Patent ductus arteriosus [Unknown]
  - Hypertelorism of orbit [Unknown]
  - Retinal coloboma [Unknown]
  - Choroidal coloboma [Unknown]
  - Cleft lip and palate [Unknown]
  - Microtia [Unknown]
  - Oesophageal atresia [Unknown]
  - Iris coloboma [Unknown]
  - Anomaly of external ear congenital [Unknown]
  - Low birth weight baby [Unknown]
  - Foetal exposure during pregnancy [Unknown]
